FAERS Safety Report 17192020 (Version 1)
Quarter: 2019Q4

REPORT INFORMATION
  Report Type: Spontaneous
  Country: US (occurrence: US)
  Receive Date: 20191223
  Receipt Date: 20191223
  Transmission Date: 20200122
  Serious: No
  Sender: FDA-Public Use
  Company Number: US-JNJFOC-20191217249

PATIENT
  Age: 58 Year
  Sex: Male
  Weight: 80.36 kg

DRUGS (1)
  1. DARZALEX [Suspect]
     Active Substance: DARATUMUMAB
     Indication: PLASMA CELL MYELOMA
     Dosage: 200 MG PRIOR TO THE INFUSION BEING STOPPED AND 1000 MG TWO DAYS LATER
     Route: 042
     Dates: start: 20191203

REACTIONS (3)
  - Sneezing [Recovered/Resolved]
  - Cough [Recovered/Resolved]
  - Infusion related reaction [Recovered/Resolved]

NARRATIVE: CASE EVENT DATE: 20191203
